FAERS Safety Report 22294851 (Version 15)
Quarter: 2025Q2

REPORT INFORMATION
  Report Type: Report from Study
  Country: US (occurrence: US)
  Receive Date: 20230508
  Receipt Date: 20250408
  Transmission Date: 20250717
  Serious: Yes (Other)
  Sender: TAKEDA
  Company Number: US-SHIRE-US202004622

PATIENT
  Age: 68 Year
  Sex: Male
  Weight: 82 kg

DRUGS (45)
  1. HUMAN IMMUNOGLOBULIN G [Suspect]
     Active Substance: HUMAN IMMUNOGLOBULIN G
     Indication: Immunodeficiency common variable
     Dosage: UNK UNK, 1/WEEK
     Dates: start: 202003
  2. HUMAN IMMUNOGLOBULIN G [Suspect]
     Active Substance: HUMAN IMMUNOGLOBULIN G
     Indication: Primary immunodeficiency syndrome
     Dosage: 20 GRAM, 1/WEEK
     Dates: start: 20220119
  3. HUMAN IMMUNOGLOBULIN G [Suspect]
     Active Substance: HUMAN IMMUNOGLOBULIN G
     Indication: Immune system disorder
     Dosage: 20 GRAM, 1/WEEK
     Dates: start: 20220130
  4. HUMAN IMMUNOGLOBULIN G [Suspect]
     Active Substance: HUMAN IMMUNOGLOBULIN G
  5. HUMAN IMMUNOGLOBULIN G [Suspect]
     Active Substance: HUMAN IMMUNOGLOBULIN G
     Dosage: 20 GRAM, 1/WEEK
  6. PREDNISONE [Suspect]
     Active Substance: PREDNISONE
     Indication: Product used for unknown indication
  7. ACETAMINOPHEN [Concomitant]
     Active Substance: ACETAMINOPHEN
  8. VITAMIN C [Concomitant]
     Active Substance: ASCORBIC ACID
  9. SIMVASTATIN [Concomitant]
     Active Substance: SIMVASTATIN
  10. LEVOTHYROXINE SODIUM [Concomitant]
     Active Substance: LEVOTHYROXINE SODIUM
  11. LUTEIN [Concomitant]
     Active Substance: LUTEIN
  12. TRILEPTAL [Concomitant]
     Active Substance: OXCARBAZEPINE
  13. ATENOLOL [Concomitant]
     Active Substance: ATENOLOL
  14. COENZYME Q10 [Concomitant]
     Active Substance: DIETARY SUPPLEMENT\UBIDECARENONE
  15. VITAMIN B [Concomitant]
     Active Substance: VITAMIN B
  16. SERTRALINE HYDROCHLORIDE [Concomitant]
     Active Substance: SERTRALINE HYDROCHLORIDE
  17. LAMICTAL [Concomitant]
     Active Substance: LAMOTRIGINE
  18. LIDOCAINE [Concomitant]
     Active Substance: LIDOCAINE
  19. VITAMIN D3 [Concomitant]
     Active Substance: CHOLECALCIFEROL
  20. Omega [Concomitant]
  21. LOMOTIL [Concomitant]
     Active Substance: ATROPINE SULFATE\DIPHENOXYLATE HYDROCHLORIDE
  22. HERBALS [Concomitant]
     Active Substance: HERBALS
  23. TEA [Concomitant]
     Active Substance: TEA LEAF
  24. Hoodia [Concomitant]
  25. EPIPEN [Concomitant]
     Active Substance: EPINEPHRINE
  26. LIDOCAINE\PRILOCAINE [Concomitant]
     Active Substance: LIDOCAINE\PRILOCAINE
  27. FLUOCINONIDE [Concomitant]
     Active Substance: FLUOCINONIDE
  28. CLOBETASOL [Concomitant]
     Active Substance: CLOBETASOL
  29. PROMETHAZINE HYDROCHLORIDE [Concomitant]
     Active Substance: PROMETHAZINE HYDROCHLORIDE
  30. AMANTADINE [Concomitant]
     Active Substance: AMANTADINE
  31. DIPHENHYDRAMINE HYDROCHLORIDE [Concomitant]
     Active Substance: DIPHENHYDRAMINE HYDROCHLORIDE
  32. GEODON [Concomitant]
     Active Substance: ZIPRASIDONE HYDROCHLORIDE\ZIPRASIDONE MESYLATE
  33. FENOFIBRATE [Concomitant]
     Active Substance: FENOFIBRATE
  34. ASPIRIN [Concomitant]
     Active Substance: ASPIRIN
  35. TAZORAC [Concomitant]
     Active Substance: TAZAROTENE
  36. DIPHENHYDRAMINE [Concomitant]
     Active Substance: DIPHENHYDRAMINE
  37. NASACORT [Concomitant]
     Active Substance: TRIAMCINOLONE ACETONIDE
  38. EPINEPHRINE [Concomitant]
     Active Substance: EPINEPHRINE
  39. AZELASTINE HYDROCHLORIDE [Concomitant]
     Active Substance: AZELASTINE HYDROCHLORIDE
  40. Echinacea goldenseal [Concomitant]
  41. LORATADINE [Concomitant]
     Active Substance: LORATADINE
  42. HERBALS\TURMERIC [Concomitant]
     Active Substance: HERBALS\TURMERIC
  43. CHONDROITIN SULFATE (CHICKEN) [Concomitant]
     Active Substance: CHONDROITIN SULFATE (CHICKEN)
  44. GLUCOSAMINE [Concomitant]
     Active Substance: GLUCOSAMINE
  45. ZINC [Concomitant]
     Active Substance: ZINC

REACTIONS (23)
  - Lymphoma [Unknown]
  - Retinal tear [Unknown]
  - Rib fracture [Unknown]
  - Insurance issue [Unknown]
  - Viral infection [Recovering/Resolving]
  - Inappropriate schedule of product administration [Unknown]
  - Allergy to plants [Unknown]
  - Sensitive skin [Unknown]
  - Mania [Unknown]
  - Infusion site discharge [Unknown]
  - Arthropathy [Unknown]
  - COVID-19 [Recovering/Resolving]
  - Product distribution issue [Unknown]
  - Food poisoning [Unknown]
  - Lung disorder [Unknown]
  - Product use issue [Unknown]
  - Pharyngitis [Unknown]
  - Influenza [Recovering/Resolving]
  - Urticaria [Unknown]
  - Infusion site haemorrhage [Unknown]
  - Eye swelling [Unknown]
  - Product dose omission issue [Recovering/Resolving]
  - Sinusitis [Recovering/Resolving]

NARRATIVE: CASE EVENT DATE: 20210711
